FAERS Safety Report 23100589 (Version 1)
Quarter: 2023Q4

REPORT INFORMATION
  Report Type: Spontaneous
  Country: IT (occurrence: IT)
  Receive Date: 20231024
  Receipt Date: 20231024
  Transmission Date: 20240109
  Serious: Yes (Other)
  Sender: FDA-Public Use
  Company Number: IT-PFIZER INC-PV202300172624

PATIENT
  Sex: Male

DRUGS (4)
  1. DOXORUBICIN HYDROCHLORIDE [Suspect]
     Active Substance: DOXORUBICIN HYDROCHLORIDE
     Indication: Anaplastic large cell lymphoma T- and null-cell types
     Dosage: 50 MG/M2, CYCLIC, ON DAY 1, 3 CYCLES
     Route: 042
     Dates: start: 2000
  2. VINCRISTINE SULFATE [Suspect]
     Active Substance: VINCRISTINE SULFATE
     Indication: Anaplastic large cell lymphoma T- and null-cell types
     Dosage: 1.5 MG/M2, CYCLIC, ON DAY 1, 3 CYCLES
     Route: 042
     Dates: start: 2000
  3. CYTOXAN [Suspect]
     Active Substance: CYCLOPHOSPHAMIDE
     Indication: Anaplastic large cell lymphoma T- and null-cell types
     Dosage: 400 MG/M2, CYCLIC, ON DAY 1, 3 CYCLES
     Route: 042
     Dates: start: 2000
  4. PREDNISONE [Suspect]
     Active Substance: PREDNISONE
     Indication: Anaplastic large cell lymphoma T- and null-cell types
     Dosage: 100 MG, CYCLIC, FROM DAY 1 TO DAY 5, 3 CYCLES
     Route: 048
     Dates: start: 2000

REACTIONS (3)
  - Myelosuppression [Unknown]
  - Enterocolitis [Unknown]
  - Cardiac failure [Unknown]

NARRATIVE: CASE EVENT DATE: 20000101
